FAERS Safety Report 8455231-0 (Version None)
Quarter: 2012Q2

REPORT INFORMATION
  Report Type: 
  Country: None (occurrence: None)
  Receive Date: 20120613
  Receipt Date: 20120529
  Transmission Date: 20120825
  Serious: Yes (Other)
  Sender: FDA-Public Use
  Company Number: JPI-P-021734

PATIENT
  Age: 68 Year
  Sex: Male
  Weight: 105.6881 kg

DRUGS (13)
  1. FAMOTIDINE [Concomitant]
  2. CITALOPRAM HYDROBROMIDE [Concomitant]
  3. ATENOLOL [Concomitant]
  4. HYDROCODONE BITARTRATE AND ACETAMINOPHEN [Concomitant]
  5. TESTOSTERONE [Concomitant]
  6. ASPIRIN [Concomitant]
  7. METHOTREXATE SODIUM [Concomitant]
  8. INFLIXIMAB [Concomitant]
  9. FOLIC ACID [Concomitant]
  10. GLUCOSAMINE [Concomitant]
  11. AMPHETAMINE, DEXTROAMPHETAMINE MIXED SALTS [Concomitant]
  12. XYREM [Suspect]
     Indication: SLEEP APNOEA SYNDROME
     Dosage: (UNKNOWN), ORAL 7.5 GM (3.75 GM, 2 IN 1 D), ORAL
     Route: 048
     Dates: start: 20060801
  13. FIBER [Concomitant]

REACTIONS (3)
  - KNEE ARTHROPLASTY [None]
  - NERVE COMPRESSION [None]
  - PAIN [None]
